FAERS Safety Report 17584189 (Version 2)
Quarter: 2020Q2

REPORT INFORMATION
  Report Type: Spontaneous
  Country: GB (occurrence: GB)
  Receive Date: 20200326
  Receipt Date: 20200423
  Transmission Date: 20200713
  Serious: Yes (Other)
  Sender: FDA-Public Use
  Company Number: GB-CIRCASSIA PHARMACEUTICALS INC-2020GB001714

PATIENT

DRUGS (1)
  1. DUAKLIR [Suspect]
     Active Substance: ACLIDINIUM BROMIDE\FORMOTEROL FUMARATE
     Indication: PRODUCT USED FOR UNKNOWN INDICATION
     Dosage: UNK
     Dates: start: 2015

REACTIONS (3)
  - Device issue [Recovered/Resolved]
  - Product dose omission [Unknown]
  - Lung abscess [Unknown]
